FAERS Safety Report 9003937 (Version 1)
Quarter: 2013Q1

REPORT INFORMATION
  Report Type: Spontaneous
  Country: US (occurrence: US)
  Receive Date: 20130108
  Receipt Date: 20130108
  Transmission Date: 20140127
  Serious: No
  Sender: FDA-Public Use
  Company Number: US-PFIZER INC-2013007689

PATIENT
  Age: 51 Year
  Sex: Male
  Weight: 81.63 kg

DRUGS (1)
  1. ADVIL [Suspect]
     Indication: PAIN
     Dosage: UNK, 1X/DAY
     Route: 048
     Dates: start: 20130101, end: 20130102

REACTIONS (2)
  - Sensory disturbance [Recovered/Resolved]
  - Muscle twitching [Recovered/Resolved]
